FAERS Safety Report 8168494-6 (Version None)
Quarter: 2012Q1

REPORT INFORMATION
  Report Type: 
  Country: None (occurrence: None)
  Receive Date: 20120227
  Receipt Date: 20120227
  Transmission Date: 20120608
  Serious: No
  Sender: FDA-Public Use
  Company Number: None

PATIENT
  Sex: Female
  Weight: 16.782 kg

DRUGS (1)
  1. TRIAMINIC SRT [Suspect]
     Indication: COUGH
     Dosage: 1/2 TSP
     Route: 048
     Dates: start: 20120220, end: 20120220

REACTIONS (6)
  - SELF INJURIOUS BEHAVIOUR [None]
  - REACTION TO DRUG EXCIPIENTS [None]
  - CONVERSION DISORDER [None]
  - FEELING ABNORMAL [None]
  - REACTION TO AZO-DYES [None]
  - BITE [None]
